FAERS Safety Report 7830584-2 (Version None)
Quarter: 2011Q4

REPORT INFORMATION
  Report Type: 
  Country: None (occurrence: None)
  Receive Date: 20111021
  Receipt Date: 20111014
  Transmission Date: 20120403
  Serious: Yes (Other)
  Sender: FDA-Public Use
  Company Number: BR-PFIZER INC-2011247554

PATIENT
  Age: 59 Year
  Sex: Male
  Weight: 90 kg

DRUGS (3)
  1. ATENOLOL [Concomitant]
     Indication: HYPERTENSION
     Dosage: UNKNOWN DOSE, 1X/DAY
     Dates: start: 20060101
  2. ARCOXIA [Concomitant]
     Indication: TENDONITIS
     Dosage: UNKNOWN DOSE, 1X/DAY
     Dates: start: 20111011
  3. VIAGRA [Suspect]
     Indication: SEXUAL DYSFUNCTION
     Dosage: UNKNOWN DOSE, 30 MINUTES BEFORE SEXUAL INTERCOURSE
     Route: 048
     Dates: start: 20111013

REACTIONS (1)
  - HAEMATURIA [None]
